FAERS Safety Report 10576149 (Version 1)
Quarter: 2014Q4

REPORT INFORMATION
  Report Type: Spontaneous
  Country: US (occurrence: None)
  Receive Date: 20141110
  Receipt Date: 20141110
  Transmission Date: 20150529
  Serious: No
  Sender: FDA-Public Use
  Company Number: None

PATIENT
  Age: 40 Year
  Sex: Female

DRUGS (1)
  1. NAPROXEN SODIUM. [Suspect]
     Active Substance: NAPROXEN SODIUM
     Indication: DYSMENORRHOEA
     Route: 048
     Dates: start: 20130601, end: 20130815

REACTIONS (4)
  - Drug eruption [None]
  - Drug hypersensitivity [None]
  - Skin hyperpigmentation [None]
  - Product substitution issue [None]

NARRATIVE: CASE EVENT DATE: 20130601
